APPROVED DRUG PRODUCT: DESOXIMETASONE
Active Ingredient: DESOXIMETASONE
Strength: 0.25%
Dosage Form/Route: CREAM;TOPICAL
Application: A205082 | Product #001 | TE Code: AB
Applicant: ACTAVIS MID ATLANTIC LLC
Approved: Sep 4, 2015 | RLD: No | RS: No | Type: RX